FAERS Safety Report 16200887 (Version 1)
Quarter: 2019Q2

REPORT INFORMATION
  Report Type: Spontaneous
  Country: US (occurrence: US)
  Receive Date: 20190416
  Receipt Date: 20190416
  Transmission Date: 20190711
  Serious: No
  Sender: FDA-Public Use
  Company Number: US-BION-007086

PATIENT
  Age: 81 Year
  Sex: Male
  Weight: 109 kg

DRUGS (4)
  1. ALIVE MEN^S MULTIVITAMIN ULTRA POTENCY [Suspect]
     Active Substance: VITAMINS
     Indication: PRODUCT USED FOR UNKNOWN INDICATION
  2. RIVAROXABAN [Concomitant]
     Active Substance: RIVAROXABAN
  3. FOSINOPRIL [Concomitant]
     Active Substance: FOSINOPRIL
  4. ALEVE EASY OPEN ARTHRITIS CAP [Suspect]
     Active Substance: NAPROXEN SODIUM
     Indication: PAIN
     Dosage: 1 DF EVERY 12 HOURS
     Route: 048
     Dates: start: 20180326, end: 20180329

REACTIONS (1)
  - Faeces discoloured [Not Recovered/Not Resolved]

NARRATIVE: CASE EVENT DATE: 20180327
